FAERS Safety Report 10265544 (Version 1)
Quarter: 2014Q2

REPORT INFORMATION
  Report Type: Report from Study
  Country: IL (occurrence: IL)
  Receive Date: 20140627
  Receipt Date: 20140627
  Transmission Date: 20141212
  Serious: Yes (Death, Other)
  Sender: FDA-Public Use
  Company Number: IL-SA-2014SA081579

PATIENT
  Age: 79 Year
  Sex: Female

DRUGS (2)
  1. LANTUS [Suspect]
     Indication: DIABETES MELLITUS
     Dosage: DOSE:6 UNIT(S)
     Route: 065
     Dates: start: 201403, end: 20140602
  2. COUMADIN [Concomitant]

REACTIONS (4)
  - Coma [Unknown]
  - Catheterisation cardiac [Unknown]
  - Vascular graft [Unknown]
  - Multi-organ failure [Fatal]
